FAERS Safety Report 25539784 (Version 2)
Quarter: 2025Q3

REPORT INFORMATION
  Report Type: Spontaneous
  Country: US (occurrence: US)
  Receive Date: 20250710
  Receipt Date: 20250829
  Transmission Date: 20251021
  Serious: No
  Sender: MYLAN
  Company Number: US-MYLANLABS-2025M1053258

PATIENT
  Sex: Female
  Weight: 51.26 kg

DRUGS (36)
  1. WIXELA INHUB [Suspect]
     Active Substance: FLUTICASONE PROPIONATE\SALMETEROL XINAFOATE
     Indication: Chronic obstructive pulmonary disease
     Dosage: 250/50 MICROGRAM, BID (TWICE A DAY)
     Dates: start: 202504
  2. WIXELA INHUB [Suspect]
     Active Substance: FLUTICASONE PROPIONATE\SALMETEROL XINAFOATE
     Indication: Emphysema
     Dosage: 250/50 MICROGRAM, BID (TWICE A DAY)
     Route: 055
     Dates: start: 202504
  3. WIXELA INHUB [Suspect]
     Active Substance: FLUTICASONE PROPIONATE\SALMETEROL XINAFOATE
     Dosage: 250/50 MICROGRAM, BID (TWICE A DAY)
     Route: 055
     Dates: start: 202504
  4. WIXELA INHUB [Suspect]
     Active Substance: FLUTICASONE PROPIONATE\SALMETEROL XINAFOATE
     Dosage: 250/50 MICROGRAM, BID (TWICE A DAY)
     Dates: start: 202504
  5. WIXELA INHUB [Suspect]
     Active Substance: FLUTICASONE PROPIONATE\SALMETEROL XINAFOATE
     Indication: Chronic obstructive pulmonary disease
     Dosage: 100/50 MICROGRAM, BID (TWICE A DAY)
  6. WIXELA INHUB [Suspect]
     Active Substance: FLUTICASONE PROPIONATE\SALMETEROL XINAFOATE
     Dosage: 100/50 MICROGRAM, BID (TWICE A DAY)
     Route: 055
  7. WIXELA INHUB [Suspect]
     Active Substance: FLUTICASONE PROPIONATE\SALMETEROL XINAFOATE
     Dosage: 100/50 MICROGRAM, BID (TWICE A DAY)
     Route: 055
  8. WIXELA INHUB [Suspect]
     Active Substance: FLUTICASONE PROPIONATE\SALMETEROL XINAFOATE
     Dosage: 100/50 MICROGRAM, BID (TWICE A DAY)
  9. REMICADE [Concomitant]
     Active Substance: INFLIXIMAB
  10. REMICADE [Concomitant]
     Active Substance: INFLIXIMAB
     Route: 065
  11. REMICADE [Concomitant]
     Active Substance: INFLIXIMAB
     Route: 065
  12. REMICADE [Concomitant]
     Active Substance: INFLIXIMAB
  13. LEVOTHYROXINE [Concomitant]
     Active Substance: LEVOTHYROXINE
  14. LEVOTHYROXINE [Concomitant]
     Active Substance: LEVOTHYROXINE
     Route: 065
  15. LEVOTHYROXINE [Concomitant]
     Active Substance: LEVOTHYROXINE
     Route: 065
  16. LEVOTHYROXINE [Concomitant]
     Active Substance: LEVOTHYROXINE
  17. IPRATROPIUM BROMIDE [Concomitant]
     Active Substance: IPRATROPIUM BROMIDE
  18. IPRATROPIUM BROMIDE [Concomitant]
     Active Substance: IPRATROPIUM BROMIDE
     Route: 065
  19. IPRATROPIUM BROMIDE [Concomitant]
     Active Substance: IPRATROPIUM BROMIDE
     Route: 065
  20. IPRATROPIUM BROMIDE [Concomitant]
     Active Substance: IPRATROPIUM BROMIDE
  21. AZELASTINE HYDROCHLORIDE [Concomitant]
     Active Substance: AZELASTINE HYDROCHLORIDE
  22. AZELASTINE HYDROCHLORIDE [Concomitant]
     Active Substance: AZELASTINE HYDROCHLORIDE
     Route: 065
  23. AZELASTINE HYDROCHLORIDE [Concomitant]
     Active Substance: AZELASTINE HYDROCHLORIDE
     Route: 065
  24. AZELASTINE HYDROCHLORIDE [Concomitant]
     Active Substance: AZELASTINE HYDROCHLORIDE
  25. METAMUCIL [Concomitant]
     Active Substance: PLANTAGO SEED
  26. METAMUCIL [Concomitant]
     Active Substance: PLANTAGO SEED
     Route: 065
  27. METAMUCIL [Concomitant]
     Active Substance: PLANTAGO SEED
     Route: 065
  28. METAMUCIL [Concomitant]
     Active Substance: PLANTAGO SEED
  29. MELOXICAM [Concomitant]
     Active Substance: MELOXICAM
  30. MELOXICAM [Concomitant]
     Active Substance: MELOXICAM
     Route: 065
  31. MELOXICAM [Concomitant]
     Active Substance: MELOXICAM
     Route: 065
  32. MELOXICAM [Concomitant]
     Active Substance: MELOXICAM
  33. Macuhealth plus+ [Concomitant]
  34. Macuhealth plus+ [Concomitant]
     Route: 065
  35. Macuhealth plus+ [Concomitant]
     Route: 065
  36. Macuhealth plus+ [Concomitant]

REACTIONS (3)
  - Fatigue [Unknown]
  - Product ineffective [Unknown]
  - Device delivery system issue [Unknown]

NARRATIVE: CASE EVENT DATE: 20250101
